FAERS Safety Report 15883566 (Version 1)
Quarter: 2019Q1

REPORT INFORMATION
  Report Type: Spontaneous
  Country: US (occurrence: US)
  Receive Date: 20190104
  Receipt Date: 20190104
  Transmission Date: 20190417
  Serious: No
  Sender: FDA-Public Use
  Company Number: None

PATIENT
  Sex: Male

DRUGS (1)
  1. MAVYRET [Suspect]
     Active Substance: GLECAPREVIR\PIBRENTASVIR
     Indication: HEPATITIS VIRAL
     Dosage: ?          OTHER DOSE:3 TABLET;?
     Route: 048
     Dates: start: 20181219

REACTIONS (2)
  - Nausea [None]
  - Decreased appetite [None]
